FAERS Safety Report 26071413 (Version 3)
Quarter: 2025Q4

REPORT INFORMATION
  Report Type: Spontaneous
  Country: US (occurrence: US)
  Receive Date: 20251120
  Receipt Date: 20251219
  Transmission Date: 20260118
  Serious: Yes (Hospitalization, Other)
  Sender: Day One Biopharmaceuticals
  Company Number: US-Day One Biopharmaceuticals Inc.-2025US001844

PATIENT

DRUGS (3)
  1. OJEMDA [Suspect]
     Active Substance: TOVORAFENIB
     Indication: Glioneuronal tumour
     Dosage: 175 MG QW
     Route: 048
     Dates: start: 20240722, end: 20251111
  2. KEPPRA [Concomitant]
     Active Substance: LEVETIRACETAM
     Indication: Product used for unknown indication
     Dosage: UNKNOWN
     Route: 065
  3. VITAMIN D NOS [Concomitant]
     Active Substance: CHOLECALCIFEROL\ERGOCALCIFEROL
     Indication: Product used for unknown indication
     Dosage: UNKNOWN
     Route: 065

REACTIONS (4)
  - Monoparesis [Recovering/Resolving]
  - Ischaemic stroke [Recovering/Resolving]
  - Cerebral haemorrhage [Recovering/Resolving]
  - Respiratory symptom [Recovering/Resolving]

NARRATIVE: CASE EVENT DATE: 20251106
